FAERS Safety Report 6433039-5 (Version None)
Quarter: 2009Q4

REPORT INFORMATION
  Report Type: 
  Country: None (occurrence: None)
  Receive Date: 20091105
  Receipt Date: 20091026
  Transmission Date: 20100525
  Serious: Yes (Death, Hospitalization)
  Sender: FDA-Public Use
  Company Number: 2009011536

PATIENT
  Age: 58 Year
  Sex: Male
  Weight: 82.5547 kg

DRUGS (7)
  1. TREANDA [Suspect]
     Indication: LYMPHOMA
     Dosage: 1.7857 MG (50 MG, 1 IN 4 WK); INTRAVENOUS, 4.2857 MG (120 MG, 1 IN 4 WK); INTRAVENOUS
     Route: 042
     Dates: end: 20090909
  2. TREANDA [Suspect]
     Indication: LYMPHOMA
     Dosage: 1.7857 MG (50 MG, 1 IN 4 WK); INTRAVENOUS, 4.2857 MG (120 MG, 1 IN 4 WK); INTRAVENOUS
     Route: 042
     Dates: start: 20090420
  3. ACYCLOVIR [Concomitant]
  4. DECADRON [Concomitant]
  5. CASODEX [Concomitant]
  6. METFORMIN HCL [Concomitant]
  7. MAGNESIUM OXIDE (MAGNESIUM OXIDE) [Concomitant]

REACTIONS (16)
  - ATELECTASIS [None]
  - BACTERAEMIA [None]
  - BRONCHITIS [None]
  - CONFUSIONAL STATE [None]
  - DEVICE RELATED INFECTION [None]
  - HAEMATOMA [None]
  - HEPATIC HAEMATOMA [None]
  - HYPERGLYCAEMIA [None]
  - HYPONATRAEMIA [None]
  - PANCYTOPENIA [None]
  - PERITONEAL HAEMORRHAGE [None]
  - PNEUMONIA [None]
  - PULMONARY CONGESTION [None]
  - SEPSIS [None]
  - SINUSITIS [None]
  - STAPHYLOCOCCAL INFECTION [None]
